FAERS Safety Report 13012103 (Version 1)
Quarter: 2016Q4

REPORT INFORMATION
  Report Type: Spontaneous
  Country: FR (occurrence: FR)
  Receive Date: 20161209
  Receipt Date: 20161209
  Transmission Date: 20170207
  Serious: Yes (Hospitalization)
  Sender: FDA-Public Use
  Company Number: PHHY2016FR167103

PATIENT
  Age: 76 Year
  Sex: Male

DRUGS (1)
  1. ENTRESTO [Suspect]
     Active Substance: SACUBITRIL\VALSARTAN
     Indication: CARDIAC DISORDER
     Dosage: 50 MG, UNK
     Route: 065
     Dates: start: 20161031

REACTIONS (4)
  - General physical condition abnormal [Unknown]
  - Product use issue [Unknown]
  - Anaemia [Unknown]
  - Depression [Unknown]

NARRATIVE: CASE EVENT DATE: 20161031
